FAERS Safety Report 6511701-3 (Version None)
Quarter: 2009Q4

REPORT INFORMATION
  Report Type: 
  Country: None (occurrence: None)
  Receive Date: 20091222
  Receipt Date: 20090410
  Transmission Date: 20100525
  Serious: No
  Sender: FDA-Public Use
  Company Number: US-ASTRAZENECA-2009UW09025

PATIENT
  Age: 50 Year
  Sex: Female
  Weight: 90.7 kg

DRUGS (2)
  1. CRESTOR [Suspect]
     Indication: BLOOD CHOLESTEROL
     Route: 048
     Dates: start: 20090415
  2. CRESTOR [Suspect]
     Route: 048
     Dates: start: 20090327

REACTIONS (3)
  - HEADACHE [None]
  - STRESS [None]
  - UNEMPLOYMENT [None]
